FAERS Safety Report 8125670-6 (Version None)
Quarter: 2012Q1

REPORT INFORMATION
  Report Type: 
  Country: None (occurrence: None)
  Receive Date: 20120209
  Receipt Date: 20120125
  Transmission Date: 20120608
  Serious: Yes (Death, Other)
  Sender: FDA-Public Use
  Company Number: GR-PFIZER INC-2012031975

PATIENT
  Age: 50 Year
  Sex: Male

DRUGS (16)
  1. BLEOMYCIN [Concomitant]
  2. PREDNISOLONE [Concomitant]
  3. IFOSFAMIDE [Concomitant]
  4. METHYLPREDNISOLONE [Concomitant]
  5. VINCRISTINE SULFATE [Suspect]
     Indication: CHRONIC LYMPHOCYTIC LEUKAEMIA
  6. CYCLOPHOSPHAMIDE [Concomitant]
  7. MITOGUAZONE [Concomitant]
  8. FLUDARABINE PHOSPHATE [Suspect]
     Indication: CHRONIC LYMPHOCYTIC LEUKAEMIA
     Dosage: UNK
  9. NAVELBINE [Concomitant]
  10. CISPLATIN [Suspect]
     Indication: CHRONIC LYMPHOCYTIC LEUKAEMIA
  11. ETOPOSIDE [Suspect]
     Indication: CHRONIC LYMPHOCYTIC LEUKAEMIA
  12. VINBLASTINE [Concomitant]
  13. DACARBAZINE [Concomitant]
  14. CYTARABINE [Concomitant]
  15. DOXORUBICIN HCL [Suspect]
     Indication: CHRONIC LYMPHOCYTIC LEUKAEMIA
  16. RITUXIMAB [Concomitant]

REACTIONS (5)
  - TOXIC ENCEPHALOPATHY [None]
  - MULTI-ORGAN FAILURE [None]
  - EPILEPSY [None]
  - DISEASE PROGRESSION [None]
  - CHRONIC LYMPHOCYTIC LEUKAEMIA [None]
